FAERS Safety Report 8814732 (Version 1)
Quarter: 2012Q4

REPORT INFORMATION
  Report Type: 
  Country: GB (occurrence: GB)
  Receive Date: 20120928
  Receipt Date: 20120928
  Transmission Date: 20130627
  Serious: Yes (Other)
  Sender: FDA-Public Use
  Company Number: GB-PFIZER INC-2012238913

PATIENT

DRUGS (1)
  1. PREGABALIN [Suspect]

REACTIONS (1)
  - Suicide attempt [Unknown]
